FAERS Safety Report 12434791 (Version 2)
Quarter: 2016Q3

REPORT INFORMATION
  Report Type: Spontaneous
  Country: US (occurrence: US)
  Receive Date: 20160603
  Receipt Date: 20160815
  Transmission Date: 20161109
  Serious: No
  Sender: FDA-Public Use
  Company Number: US-B.I. PHARMACEUTICALS,INC./RIDGEFIELD-2016-BI-32132BP

PATIENT
  Sex: Female

DRUGS (1)
  1. SPIRIVA [Suspect]
     Active Substance: TIOTROPIUM BROMIDE MONOHYDRATE
     Indication: PRODUCT USED FOR UNKNOWN INDICATION
     Route: 065
     Dates: start: 201605, end: 201605

REACTIONS (7)
  - Fear [Unknown]
  - Oral discomfort [Unknown]
  - Dyspnoea [Unknown]
  - Product quality issue [Unknown]
  - Feeling abnormal [Unknown]
  - Visual impairment [Unknown]
  - Malaise [Unknown]
